FAERS Safety Report 8010517-9 (Version None)
Quarter: 2011Q4

REPORT INFORMATION
  Report Type: 
  Country: None (occurrence: None)
  Receive Date: 20111222
  Receipt Date: 20111213
  Transmission Date: 20120403
  Serious: Yes (Hospitalization)
  Sender: FDA-Public Use
  Company Number: US-GDP-11412617

PATIENT
  Age: 81 Year
  Sex: Female

DRUGS (2)
  1. ORACEA [Suspect]
     Indication: ROSACEA
     Dosage: (40 MG QD ORAL)
     Route: 048
  2. CALCIUM ACETATE [Concomitant]

REACTIONS (1)
  - RASH [None]
